FAERS Safety Report 7581893-6 (Version None)
Quarter: 2011Q2

REPORT INFORMATION
  Report Type: 
  Country: None (occurrence: None)
  Receive Date: 20110629
  Receipt Date: 20101221
  Transmission Date: 20111010
  Serious: Yes (Hospitalization, Other)
  Sender: FDA-Public Use
  Company Number: PHHY2010FR89505

PATIENT
  Sex: Male

DRUGS (7)
  1. TASIGNA [Suspect]
     Indication: CHRONIC MYELOID LEUKAEMIA
     Dosage: 800 MG DAILY
     Dates: start: 20090311
  2. NEURONTIN [Concomitant]
     Indication: CONVULSION
     Dosage: 1200 MG DAILY
     Dates: start: 20070101
  3. ATORVASTATIN CALCIUM [Concomitant]
     Indication: HYPERCHOLESTEROLAEMIA
     Dosage: 40 MG,  DAILY
  4. PERINDOPRIL ERBUMINE [Concomitant]
     Indication: CARDIAC FAILURE
     Dosage: UNK
     Dates: start: 20090101
  5. FUROSEMIDE [Concomitant]
     Indication: PULMONARY OEDEMA
     Dosage: 80 MG DAILY
     Dates: start: 20090601
  6. ASPIRIN [Concomitant]
     Indication: PROPHYLAXIS
     Dosage: 160 MG DAILY
     Dates: start: 20090101
  7. PROCORALAN [Concomitant]
     Indication: ANGINA PECTORIS
     Dosage: 5 MG DAILY

REACTIONS (15)
  - CARDIOMEGALY [None]
  - PLATELET COUNT INCREASED [None]
  - VOMITING [None]
  - RENAL FAILURE ACUTE [None]
  - POLYURIA [None]
  - DYSPNOEA [None]
  - OLIGURIA [None]
  - HAEMATURIA [None]
  - ASTHENIA [None]
  - SOMNOLENCE [None]
  - LEUKOCYTURIA [None]
  - CARDIOMYOPATHY [None]
  - HEPATOJUGULAR REFLUX [None]
  - TREMOR [None]
  - WHITE BLOOD CELL COUNT INCREASED [None]
